FAERS Safety Report 7302718-X (Version None)
Quarter: 2011Q1

REPORT INFORMATION
  Report Type: 
  Country: None (occurrence: None)
  Receive Date: 20110218
  Receipt Date: 20110216
  Transmission Date: 20110831
  Serious: Yes (Hospitalization)
  Sender: FDA-Public Use
  Company Number: US-CEPHALON-2011000752

PATIENT
  Age: 73 Year
  Sex: Male

DRUGS (5)
  1. DICLOFENAC [Concomitant]
  2. LEVOTHYROXINE [Concomitant]
  3. OMEPRAZOLE [Concomitant]
  4. TREANDA [Suspect]
     Indication: CHRONIC LYMPHOCYTIC LEUKAEMIA
     Route: 042
     Dates: start: 20110110, end: 20110111
  5. TERAZOSIN [Concomitant]

REACTIONS (6)
  - ATRIAL FIBRILLATION [None]
  - ASTHENIA [None]
  - MALAISE [None]
  - DEHYDRATION [None]
  - PANCYTOPENIA [None]
  - RENAL FAILURE ACUTE [None]
